FAERS Safety Report 9641699 (Version 1)
Quarter: 2013Q4

REPORT INFORMATION
  Report Type: Spontaneous
  Country: FR (occurrence: FR)
  Receive Date: 20131023
  Receipt Date: 20131023
  Transmission Date: 20140711
  Serious: Yes (Hospitalization)
  Sender: FDA-Public Use
  Company Number: FR-BRISTOL-MYERS SQUIBB COMPANY-19571736

PATIENT
  Age: 43 Year
  Sex: Female
  Weight: 76 kg

DRUGS (7)
  1. REYATAZ CAPS 300 MG [Suspect]
     Indication: HIV INFECTION
     Dates: start: 20080117
  2. METFORMIN HCL [Suspect]
     Dosage: 1 DF: 1000 UNITS NOS
  3. NORVIR [Suspect]
     Indication: HIV INFECTION
     Dates: start: 20080117
  4. KIVEXA [Suspect]
     Indication: HIV INFECTION
     Dosage: 600 MG/300 MG TABLET
     Dates: start: 20080117
  5. MAGNE-B6 [Concomitant]
  6. UVEDOSE [Concomitant]
  7. DOLIPRANE [Concomitant]
     Dosage: 1 DF: 1000 NOS

REACTIONS (5)
  - Myalgia [Recovered/Resolved]
  - Arthralgia [Recovered/Resolved]
  - Dizziness [Recovered/Resolved]
  - Asthenia [Recovered/Resolved]
  - Hypoglycaemia [Recovered/Resolved]
